FAERS Safety Report 4333239-4 (Version None)
Quarter: 2004Q1

REPORT INFORMATION
  Report Type: 
  Country: None (occurrence: None)
  Receive Date: 20040330
  Receipt Date: 20040317
  Transmission Date: 20041129
  Serious: Yes (Death, Hospitalization)
  Sender: FDA-Public Use
  Company Number: 04P-163-0254156-00

PATIENT
  Age: 29 Year
  Sex: Male

DRUGS (3)
  1. KALETRA [Suspect]
     Indication: HIV INFECTION
     Dosage: 1 IN 1 D, PER ORAL
     Route: 048
     Dates: start: 20040213, end: 20040315
  2. TENOFOVIR [Concomitant]
  3. LAMIVUDINE [Concomitant]

REACTIONS (13)
  - AMOEBIASIS [None]
  - CARDIAC ARREST [None]
  - CARDIOMYOPATHY [None]
  - CEREBELLAR INFARCTION [None]
  - CYTOMEGALOVIRUS VIRAEMIA [None]
  - DIARRHOEA [None]
  - EJECTION FRACTION DECREASED [None]
  - HYPONATRAEMIA [None]
  - MENTAL STATUS CHANGES [None]
  - NAUSEA [None]
  - PARASITE STOOL TEST POSITIVE [None]
  - PYREXIA [None]
  - VOMITING [None]
